FAERS Safety Report 14879392 (Version 2)
Quarter: 2018Q2

REPORT INFORMATION
  Report Type: Spontaneous
  Country: US (occurrence: US)
  Receive Date: 20180511
  Receipt Date: 20180514
  Transmission Date: 20180711
  Serious: No
  Sender: FDA-Public Use
  Company Number: US-PFIZER INC-2018188254

PATIENT
  Age: 51 Year
  Sex: Male
  Weight: 79.37 kg

DRUGS (3)
  1. LYRICA [Suspect]
     Active Substance: PREGABALIN
     Indication: FIBROMYALGIA
     Dosage: 75 MG, UNK
     Route: 048
  2. LYRICA [Suspect]
     Active Substance: PREGABALIN
     Dosage: 150 MG, 3X/DAY
     Route: 048
     Dates: start: 2018
  3. LYRICA [Suspect]
     Active Substance: PREGABALIN
     Indication: MULTIPLE SCLEROSIS
     Dosage: 75 MG, 2X/DAY
     Route: 048

REACTIONS (6)
  - Sexual dysfunction [Unknown]
  - Weight increased [Unknown]
  - Ejaculation disorder [Unknown]
  - Gait disturbance [Unknown]
  - Erectile dysfunction [Unknown]
  - Body height decreased [Unknown]
